FAERS Safety Report 4870771-9 (Version None)
Quarter: 2006Q1

REPORT INFORMATION
  Report Type: 
  Country: None (occurrence: None)
  Receive Date: 20060103
  Receipt Date: 20050920
  Transmission Date: 20060701
  Serious: Yes (Hospitalization)
  Sender: FDA-Public Use
  Company Number: US-MERCK-0509USA03014

PATIENT
  Age: 75 Year
  Sex: Male
  Weight: 80 kg

DRUGS (9)
  1. VIOXX [Suspect]
     Indication: ARTHRALGIA
     Route: 048
     Dates: start: 19990801, end: 20040901
  2. LASIX [Concomitant]
     Route: 065
  3. K-DUR 10 [Concomitant]
     Route: 065
  4. TIAZAC [Concomitant]
     Route: 065
  5. TRICOR [Concomitant]
     Route: 065
  6. PREVACID [Concomitant]
     Route: 065
  7. NITROQUICK [Concomitant]
     Route: 065
  8. NORVASC [Concomitant]
     Route: 065
  9. TYLENOL [Concomitant]
     Route: 065

REACTIONS (6)
  - BRAIN STEM INFARCTION [None]
  - CEREBROVASCULAR ACCIDENT [None]
  - CHEST PAIN [None]
  - CHRONIC OBSTRUCTIVE PULMONARY DISEASE [None]
  - DYSPNOEA [None]
  - HYPERHIDROSIS [None]
